FAERS Safety Report 6455195-5 (Version None)
Quarter: 2009Q4

REPORT INFORMATION
  Report Type: 
  Country: None (occurrence: None)
  Receive Date: 20091119
  Receipt Date: 20091103
  Transmission Date: 20100525
  Serious: Yes (Disabling)
  Sender: FDA-Public Use
  Company Number: 2009-4044

PATIENT
  Age: 43 Year
  Sex: Female
  Weight: 53 kg

DRUGS (1)
  1. DYSPORT [Suspect]
     Indication: SKIN WRINKLING
     Dosage: 50 ML, SINGLE CYCLE
     Dates: start: 20090924, end: 20090924

REACTIONS (9)
  - BALANCE DISORDER [None]
  - CEREBRAL ISCHAEMIA [None]
  - DIZZINESS [None]
  - DYSPHONIA [None]
  - DYSPNOEA [None]
  - FEELING ABNORMAL [None]
  - RASH [None]
  - THINKING ABNORMAL [None]
  - WHEEZING [None]
